FAERS Safety Report 14206248 (Version 1)
Quarter: 2017Q4

REPORT INFORMATION
  Report Type: Spontaneous
  Country: RU (occurrence: RU)
  Receive Date: 20171120
  Receipt Date: 20171120
  Transmission Date: 20180321
  Serious: Yes (Other)
  Sender: FDA-Public Use
  Company Number: RU-BAYER-2017-218069

PATIENT
  Age: 38 Year
  Sex: Female

DRUGS (2)
  1. QLAIRA [Suspect]
     Active Substance: DIENOGEST\ESTRADIOL VALERATE
     Indication: PROPHYLAXIS
  2. QLAIRA [Suspect]
     Active Substance: DIENOGEST\ESTRADIOL VALERATE
     Indication: OVARIAN CYST
     Route: 048

REACTIONS (6)
  - Nasopharyngitis [None]
  - Off label use [None]
  - Osteochondrosis [None]
  - Product use in unapproved indication [None]
  - Cough [None]
  - Metrorrhagia [None]
